FAERS Safety Report 14834254 (Version 1)
Quarter: 2018Q2

REPORT INFORMATION
  Report Type: Spontaneous
  Country: US (occurrence: US)
  Receive Date: 20180501
  Receipt Date: 20180501
  Transmission Date: 20180711
  Serious: Yes (Other)
  Sender: FDA-Public Use
  Company Number: US-ELI_LILLY_AND_COMPANY-US201804013414

PATIENT
  Age: 79 Year
  Sex: Female

DRUGS (3)
  1. FULVESTRANT. [Concomitant]
     Active Substance: FULVESTRANT
     Indication: PRODUCT USED FOR UNKNOWN INDICATION
  2. ABEMACICLIB 150MG [Suspect]
     Active Substance: ABEMACICLIB
     Dosage: 100 UNK, UNK
     Route: 065
  3. ABEMACICLIB 150MG [Suspect]
     Active Substance: ABEMACICLIB
     Indication: PRODUCT USED FOR UNKNOWN INDICATION
     Dosage: 150 MG, UNKNOWN
     Route: 065
     Dates: start: 201710

REACTIONS (4)
  - Haemoglobin decreased [Recovered/Resolved]
  - Malignant neoplasm progression [Unknown]
  - Feeling abnormal [Unknown]
  - Haemoglobin decreased [Unknown]
